FAERS Safety Report 24367989 (Version 1)
Quarter: 2024Q3

REPORT INFORMATION
  Report Type: Spontaneous
  Country: US (occurrence: US)
  Receive Date: 20240926
  Receipt Date: 20240926
  Transmission Date: 20241017
  Serious: No
  Sender: BRISTOL MYERS SQUIBB
  Company Number: US-BRISTOL-MYERS SQUIBB COMPANY-2024-149944

PATIENT
  Sex: Female
  Weight: 114 kg

DRUGS (4)
  1. REBLOZYL [Suspect]
     Active Substance: LUSPATERCEPT-AAMT
     Indication: Myelodysplastic syndrome
     Dosage: DOSE : 2
     Dates: start: 20240806
  2. REBLOZYL [Suspect]
     Active Substance: LUSPATERCEPT-AAMT
     Route: 058
  3. REBLOZYL [Suspect]
     Active Substance: LUSPATERCEPT-AAMT
     Route: 058
  4. REBLOZYL [Suspect]
     Active Substance: LUSPATERCEPT-AAMT
     Route: 058

REACTIONS (1)
  - Treatment noncompliance [Unknown]
